FAERS Safety Report 6060262-4 (Version None)
Quarter: 2009Q1

REPORT INFORMATION
  Report Type: 
  Country: None (occurrence: None)
  Receive Date: 20090129
  Receipt Date: 20090113
  Transmission Date: 20090719
  Serious: Yes (Other)
  Sender: FDA-Public Use
  Company Number: 2008S1022319

PATIENT
  Age: 33 Year
  Sex: Female

DRUGS (4)
  1. AZATHIOPRINE [Suspect]
     Indication: SYSTEMIC LUPUS ERYTHEMATOSUS
     Dosage: 100 MG;INTRAVENOUS; DAILY
     Route: 042
  2. CYCLOPHOSPHAMIDE [Suspect]
     Indication: LUPUS NEPHRITIS
     Dates: start: 20020101
  3. MYCOPHENOLATE MOFETIL [Suspect]
     Indication: LUPUS NEPHRITIS
  4. PREDNISOLONE [Suspect]
     Indication: LUPUS NEPHRITIS

REACTIONS (4)
  - IMMUNODEFICIENCY [None]
  - LUPUS NEPHRITIS [None]
  - OBLITERATIVE BRONCHIOLITIS [None]
  - RESPIRATORY DISORDER [None]
